FAERS Safety Report 18543220 (Version 1)
Quarter: 2020Q4

REPORT INFORMATION
  Report Type: Spontaneous
  Country: US (occurrence: US)
  Receive Date: 20201124
  Receipt Date: 20201124
  Transmission Date: 20210114
  Serious: No
  Sender: FDA-Public Use
  Company Number: US-ELI_LILLY_AND_COMPANY-US202011009025

PATIENT
  Age: 61 Year
  Sex: Female

DRUGS (1)
  1. LYUMJEV [Suspect]
     Active Substance: INSULIN LISPRO-AABC
     Indication: DIABETES MELLITUS MANAGEMENT
     Dosage: UNK, UNKNOWN
     Route: 065
     Dates: start: 20201028

REACTIONS (3)
  - Wrong technique in product usage process [Unknown]
  - Injection site bruising [Unknown]
  - Injection site pain [Unknown]
